FAERS Safety Report 11589855 (Version 3)
Quarter: 2016Q2

REPORT INFORMATION
  Report Type: Spontaneous
  Country: JP (occurrence: JP)
  Receive Date: 20151002
  Receipt Date: 20160421
  Transmission Date: 20160815
  Serious: Yes (Hospitalization, Other)
  Sender: FDA-Public Use
  Company Number: JP-GLAXOSMITHKLINE-JP2015JPN137803

PATIENT
  Age: 22 Year
  Sex: Female
  Weight: 36 kg

DRUGS (3)
  1. ROHYPNOL [Concomitant]
     Active Substance: FLUNITRAZEPAM
     Dosage: UNK
  2. PAXIL [Concomitant]
     Active Substance: PAROXETINE HYDROCHLORIDE
     Dosage: UNK
  3. LAMICTAL [Suspect]
     Active Substance: LAMOTRIGINE
     Indication: DEPRESSION
     Dosage: 25 MG, 1D
     Route: 048
     Dates: start: 20141007

REACTIONS (12)
  - Rash [Unknown]
  - Toxic epidermal necrolysis [Recovered/Resolved]
  - Dysphagia [Unknown]
  - Coating in mouth [Unknown]
  - Oropharyngeal pain [Recovered/Resolved]
  - Aphthous ulcer [Unknown]
  - Epiglottis ulcer [Recovered/Resolved]
  - Erythema [Unknown]
  - Lymphadenopathy [Unknown]
  - Headache [Recovered/Resolved]
  - Pharyngeal ulceration [Recovered/Resolved]
  - Hyperthermia [Unknown]

NARRATIVE: CASE EVENT DATE: 20141014
